FAERS Safety Report 5009862-0 (Version None)
Quarter: 2006Q2

REPORT INFORMATION
  Report Type: 
  Country: None (occurrence: None)
  Receive Date: 20060522
  Receipt Date: 20060510
  Transmission Date: 20061013
  Serious: Yes (Life-Threatening, Hospitalization)
  Sender: FDA-Public Use
  Company Number: 223304

PATIENT
  Age: 76 Year
  Sex: Male
  Weight: 97 kg

DRUGS (10)
  1. MABTHERA (RITUXIMAB)CONC FOR SOLUTION FOR INFUSION [Suspect]
     Indication: B-CELL LYMPHOMA
     Dosage: 375 MG/M2, 1/MONTH, INTRAVENOUS  ;  Q3M
     Route: 042
     Dates: start: 20050401, end: 20051122
  2. MABTHERA (RITUXIMAB)CONC FOR SOLUTION FOR INFUSION [Suspect]
     Indication: B-CELL LYMPHOMA
     Dosage: 375 MG/M2, 1/MONTH, INTRAVENOUS  ;  Q3M
     Route: 042
     Dates: start: 20051101
  3. CHLORAMINOPHENE (CHLORAMBUCIL) [Concomitant]
  4. FLUDARABINE [Concomitant]
  5. FIALURIDINE [Concomitant]
  6. NEUPOGEN [Concomitant]
  7. CYCLOPHOSPHAMIDE [Concomitant]
  8. DOXORUBICIN HCL [Concomitant]
  9. VINCRISTINE [Concomitant]
  10. PREDNISONE [Concomitant]

REACTIONS (8)
  - CONDITION AGGRAVATED [None]
  - DIFFUSE LARGE B-CELL LYMPHOMA [None]
  - INFECTED SKIN ULCER [None]
  - LUNG NEOPLASM MALIGNANT [None]
  - METASTASES TO ADRENALS [None]
  - METASTASES TO CENTRAL NERVOUS SYSTEM [None]
  - PANCYTOPENIA [None]
  - SUPERINFECTION [None]
